FAERS Safety Report 11006485 (Version 1)
Quarter: 2015Q2

REPORT INFORMATION
  Report Type: Spontaneous
  Country: US (occurrence: US)
  Receive Date: 20150409
  Receipt Date: 20150409
  Transmission Date: 20150821
  Serious: No
  Sender: FDA-Public Use
  Company Number: US-ALLERGAN-1413733US

PATIENT
  Age: 73 Year
  Sex: Female

DRUGS (2)
  1. ASA [Concomitant]
     Active Substance: ASPIRIN
  2. LATISSE [Suspect]
     Active Substance: BIMATOPROST
     Indication: GROWTH OF EYELASHES
     Dosage: 2 GTT, QHS
     Route: 061
     Dates: start: 201311

REACTIONS (4)
  - Eye complication associated with device [Recovered/Resolved]
  - Eye pain [Unknown]
  - Lacrimation increased [Unknown]
  - Madarosis [Unknown]
